FAERS Safety Report 5754122-3 (Version None)
Quarter: 2008Q2

REPORT INFORMATION
  Report Type: 
  Country: None (occurrence: None)
  Receive Date: 20080528
  Receipt Date: 20080528
  Transmission Date: 20081010
  Serious: Yes (Hospitalization)
  Sender: FDA-Public Use
  Company Number: None

PATIENT
  Age: 6 Year
  Sex: Female
  Weight: 18.1439 kg

DRUGS (1)
  1. TOPAMAX [Suspect]
     Indication: SKIN PAPILLOMA
     Dosage: 1 PER DAY PO
     Route: 048
     Dates: start: 20080515, end: 20080515

REACTIONS (21)
  - ABNORMAL BEHAVIOUR [None]
  - AMNESIA [None]
  - BACK PAIN [None]
  - CHOKING [None]
  - COGNITIVE DISORDER [None]
  - DISTURBANCE IN ATTENTION [None]
  - DRUG DISPENSING ERROR [None]
  - DYSPHAGIA [None]
  - DYSPHEMIA [None]
  - DYSPNOEA [None]
  - ECHOLALIA [None]
  - EMOTIONAL DISORDER [None]
  - FEAR [None]
  - FEELING ABNORMAL [None]
  - MEDICATION ERROR [None]
  - MOOD SWINGS [None]
  - SCREAMING [None]
  - SPEECH DISORDER [None]
  - STARING [None]
  - VOMITING [None]
  - WRONG DRUG ADMINISTERED [None]
